FAERS Safety Report 7395003-1 (Version None)
Quarter: 2011Q2

REPORT INFORMATION
  Report Type: 
  Country: None (occurrence: None)
  Receive Date: 20110405
  Receipt Date: 20110328
  Transmission Date: 20111010
  Serious: Yes (Hospitalization)
  Sender: FDA-Public Use
  Company Number: FR-ASTRAZENECA-2011SE17915

PATIENT
  Sex: Male

DRUGS (8)
  1. CORTANCYL [Suspect]
     Route: 048
     Dates: end: 20110114
  2. SPECIAFOLDINE [Suspect]
     Route: 048
     Dates: end: 20110114
  3. HUMIRA [Suspect]
     Route: 058
     Dates: start: 20060101, end: 20110114
  4. NEXIUM [Suspect]
     Route: 048
     Dates: end: 20110114
  5. METHOTREXATE [Suspect]
     Route: 048
     Dates: end: 20110114
  6. TOPALGIC [Suspect]
     Route: 047
     Dates: end: 20110114
  7. ACETAMINOPHEN [Suspect]
     Route: 048
     Dates: end: 20110114
  8. TARDYFERON [Suspect]
     Route: 048
     Dates: end: 20110114

REACTIONS (1)
  - LIVER ABSCESS [None]
